FAERS Safety Report 21953205 (Version 6)
Quarter: 2024Q1

REPORT INFORMATION
  Report Type: Report from Study
  Country: US (occurrence: US)
  Receive Date: 20230204
  Receipt Date: 20240202
  Transmission Date: 20240410
  Serious: No
  Sender: FDA-Public Use
  Company Number: US-002147023-NVSC2023US021103

PATIENT
  Sex: Female

DRUGS (2)
  1. ILARIS [Suspect]
     Active Substance: CANAKINUMAB
     Indication: Familial mediterranean fever
     Dosage: 120 MG, QMO
     Route: 058
     Dates: start: 20191023
  2. ILARIS [Suspect]
     Active Substance: CANAKINUMAB
     Indication: Antiphospholipid syndrome
     Dosage: 105 MG, QMO
     Route: 058
     Dates: start: 20201003

REACTIONS (6)
  - Oropharyngeal discomfort [Unknown]
  - Illness [Unknown]
  - Pain in extremity [Unknown]
  - Influenza [Unknown]
  - Pyrexia [Unknown]
  - Inappropriate schedule of product administration [Unknown]
